FAERS Safety Report 17071051 (Version 1)
Quarter: 2019Q4

REPORT INFORMATION
  Report Type: Spontaneous
  Country: US (occurrence: US)
  Receive Date: 20191025
  Receipt Date: 20191025
  Transmission Date: 20200122
  Serious: Yes (Hospitalization)
  Sender: FDA-Public Use
  Company Number: None

PATIENT
  Age: 17 Year
  Sex: Female

DRUGS (9)
  1. NO DRUG NAME [Concomitant]
  2. NORLYDA [Concomitant]
     Active Substance: NORETHINDRONE
  3. XOLAIR [Suspect]
     Active Substance: OMALIZUMAB
     Indication: IDIOPATHIC URTICARIA
     Route: 058
     Dates: start: 20190925, end: 20191025
  4. BUSPIRONE [Concomitant]
     Active Substance: BUSPIRONE HYDROCHLORIDE
  5. PREDNISONE. [Concomitant]
     Active Substance: PREDNISONE
  6. SODIUM CHLOR [Concomitant]
     Active Substance: SODIUM CHLORIDE
  7. ESCITALOPRAM [Concomitant]
     Active Substance: ESCITALOPRAM OXALATE
  8. HYDROXYZ HCL [Concomitant]
     Active Substance: HYDROXYZINE HYDROCHLORIDE
  9. VENLAFAXINE [Concomitant]
     Active Substance: VENLAFAXINE HYDROCHLORIDE

REACTIONS (1)
  - Anaphylactoid reaction [None]

NARRATIVE: CASE EVENT DATE: 20191002
